FAERS Safety Report 9892657 (Version 1)
Quarter: 2014Q1

REPORT INFORMATION
  Report Type: Spontaneous
  Country: US (occurrence: US)
  Receive Date: 20140212
  Receipt Date: 20140212
  Transmission Date: 20141002
  Serious: Yes (Death, Other)
  Sender: FDA-Public Use
  Company Number: US-TAKEDA-2014TUS000967

PATIENT
  Sex: 0

DRUGS (1)
  1. COLCRYS [Suspect]
     Dosage: UNK, TID
     Route: 048
     Dates: end: 20140120

REACTIONS (3)
  - Death [Fatal]
  - Ovarian cancer [Not Recovered/Not Resolved]
  - Condition aggravated [Not Recovered/Not Resolved]
